FAERS Safety Report 25210805 (Version 2)
Quarter: 2025Q2

REPORT INFORMATION
  Report Type: Report from Study
  Country: CL (occurrence: CL)
  Receive Date: 20250417
  Receipt Date: 20250429
  Transmission Date: 20250716
  Serious: Yes (Hospitalization)
  Sender: EMD SERONO INC
  Company Number: CL-Merck Healthcare KGaA-2025018550

PATIENT
  Age: 42 Year
  Sex: Female

DRUGS (1)
  1. MAVENCLAD [Suspect]
     Active Substance: CLADRIBINE
     Indication: Multiple sclerosis

REACTIONS (3)
  - Decreased appetite [Unknown]
  - Nausea [Unknown]
  - Jaundice [Unknown]

NARRATIVE: CASE EVENT DATE: 20250409
